FAERS Safety Report 7723889-7 (Version None)
Quarter: 2011Q3

REPORT INFORMATION
  Report Type: 
  Country: None (occurrence: None)
  Receive Date: 20110901
  Receipt Date: 20110827
  Transmission Date: 20111222
  Serious: Yes (Hospitalization)
  Sender: FDA-Public Use
  Company Number: SK-SANOFI-AVENTIS-2011SA054547

PATIENT
  Age: 55 Year
  Sex: Male
  Weight: 98 kg

DRUGS (2)
  1. INSULIN [Concomitant]
  2. LANTUS [Suspect]
     Dosage: 28-0-0-30
     Route: 058

REACTIONS (2)
  - ANKLE FRACTURE [None]
  - HYPOGLYCAEMIC UNCONSCIOUSNESS [None]
